FAERS Safety Report 5874559-1 (Version None)
Quarter: 2008Q3

REPORT INFORMATION
  Report Type: 
  Country: None (occurrence: None)
  Receive Date: 20080909
  Receipt Date: 20080903
  Transmission Date: 20090109
  Serious: Yes (Death)
  Sender: FDA-Public Use
  Company Number: PHHY2008ZA20218

PATIENT
  Age: 56 Year
  Sex: Male

DRUGS (3)
  1. CLOZAPINE [Suspect]
  2. CLOZAPINE [Suspect]
  3. EPILIM [Concomitant]

REACTIONS (4)
  - ARRHYTHMIA [None]
  - INSOMNIA [None]
  - PULMONARY OEDEMA [None]
  - SOMNOLENCE [None]
